FAERS Safety Report 24103090 (Version 1)
Quarter: 2024Q3

REPORT INFORMATION
  Report Type: Spontaneous
  Country: GB (occurrence: GB)
  Receive Date: 20240717
  Receipt Date: 20240717
  Transmission Date: 20241016
  Serious: Yes (Other)
  Sender: TEVA
  Company Number: GB-CRESCENT PHARMA LIMITED-2024-GB-06399

PATIENT

DRUGS (2)
  1. OLANZAPINE [Suspect]
     Active Substance: OLANZAPINE
     Indication: Product used for unknown indication
     Dosage: UNK
     Route: 065
  2. OLANZAPINE [Suspect]
     Active Substance: OLANZAPINE
     Indication: Product used for unknown indication
     Dosage: 25 MILLIGRAM (MAXIMUM DOSE), UNK
     Route: 065

REACTIONS (3)
  - Myocardial infarction [Unknown]
  - Blood cholesterol abnormal [Unknown]
  - Product size issue [Unknown]
